FAERS Safety Report 7356886-4 (Version None)
Quarter: 2011Q1

REPORT INFORMATION
  Report Type: 
  Country: None (occurrence: None)
  Receive Date: 20110317
  Receipt Date: 20110308
  Transmission Date: 20110831
  Serious: No
  Sender: FDA-Public Use
  Company Number: US-BIOGENIDEC-2011BI009063

PATIENT
  Sex: Male

DRUGS (1)
  1. TYSABRI [Suspect]
     Indication: MULTIPLE SCLEROSIS
     Route: 042
     Dates: start: 20070223

REACTIONS (6)
  - HYPOAESTHESIA [None]
  - FATIGUE [None]
  - INFLUENZA [None]
  - INFUSION SITE PAIN [None]
  - EFFUSION [None]
  - BLOOD TEST ABNORMAL [None]
